FAERS Safety Report 19990767 (Version 1)
Quarter: 2021Q4

REPORT INFORMATION
  Report Type: Spontaneous
  Country: US (occurrence: US)
  Receive Date: 20211022
  Receipt Date: 20211022
  Transmission Date: 20220303
  Serious: Yes (Death)
  Sender: FDA-Public Use
  Company Number: None

PATIENT
  Age: 82 Year
  Sex: Female

DRUGS (12)
  1. TOBRAMYCIN [Suspect]
     Active Substance: TOBRAMYCIN
     Dosage: ?          OTHER DOSE:300MG/5ML;
     Route: 055
  2. ADVAIR DISKU AER [Concomitant]
  3. ALBUTEROL [Concomitant]
     Active Substance: ALBUTEROL
  4. ASPIRIN LOW TAB [Concomitant]
  5. BIOTIN TAB [Concomitant]
  6. CHLORPROPAM TAB [Concomitant]
  7. ELIQUIS [Concomitant]
     Active Substance: APIXABAN
  8. FOSAMAX TAB [Concomitant]
  9. FUROSEMIDE TAB [Concomitant]
  10. METOPROL TAR TAB [Concomitant]
  11. SPIRONOLACT TAB [Concomitant]
  12. TOBRAMYCIN [Concomitant]
     Active Substance: TOBRAMYCIN

REACTIONS (1)
  - Death [None]

NARRATIVE: CASE EVENT DATE: 20211008
